FAERS Safety Report 15429905 (Version 3)
Quarter: 2018Q4

REPORT INFORMATION
  Report Type: Spontaneous
  Country: NL (occurrence: NL)
  Receive Date: 20180926
  Receipt Date: 20181124
  Transmission Date: 20190204
  Serious: Yes (Other)
  Sender: FDA-Public Use
  Company Number: PHHY2018NL106589

PATIENT

DRUGS (2)
  1. GILENYA [Suspect]
     Active Substance: FINGOLIMOD HYDROCHLORIDE
     Dosage: QD
     Route: 065
     Dates: start: 20181018
  2. GILENYA [Suspect]
     Active Substance: FINGOLIMOD HYDROCHLORIDE
     Indication: PRODUCT USED FOR UNKNOWN INDICATION
     Dosage: QD
     Route: 065
     Dates: start: 20170301, end: 20181016

REACTIONS (4)
  - Lymphocyte count increased [Unknown]
  - Phlebitis [Unknown]
  - Lymphocyte count decreased [Recovered/Resolved]
  - Pyrexia [Recovered/Resolved]
